FAERS Safety Report 4774047-X (Version None)
Quarter: 2005Q3

REPORT INFORMATION
  Report Type: 
  Country: None (occurrence: None)
  Receive Date: 20050920
  Receipt Date: 20050914
  Transmission Date: 20060218
  Serious: Yes (Hospitalization)
  Sender: FDA-Public Use
  Company Number: JP-MERCK-0509USA01999

PATIENT
  Age: 72 Year
  Sex: Female

DRUGS (7)
  1. CLINORIL [Suspect]
     Indication: OSTEOPOROSIS
     Route: 048
     Dates: start: 20050101, end: 20050913
  2. BONALON [Suspect]
     Indication: OSTEOPOROSIS
     Route: 048
     Dates: start: 20050101, end: 20050913
  3. GRAMALIL [Concomitant]
     Indication: EXCITABILITY
     Route: 048
     Dates: start: 20050101
  4. MADOPAR [Concomitant]
     Indication: PARKINSON'S DISEASE
     Route: 048
  5. SEROQUEL [Concomitant]
     Indication: EXCITABILITY
     Route: 048
  6. ALFAROL [Concomitant]
     Indication: OSTEOPOROSIS
     Route: 048
  7. CALCIUM ASPARTATE [Concomitant]
     Indication: OSTEOPOROSIS
     Route: 065

REACTIONS (2)
  - DRUG ERUPTION [None]
  - RASH [None]
